FAERS Safety Report 14584921 (Version 1)
Quarter: 2018Q1

REPORT INFORMATION
  Report Type: Spontaneous
  Country: IT (occurrence: IT)
  Receive Date: 20180301
  Receipt Date: 20180301
  Transmission Date: 20180509
  Serious: Yes (Other)
  Sender: FDA-Public Use
  Company Number: IT-ACCORD-044733

PATIENT
  Age: 14 Year
  Sex: Male

DRUGS (4)
  1. CICLOSPORIN [Suspect]
     Active Substance: CYCLOSPORINE
     Indication: NEPHROTIC SYNDROME
  2. RITUXIMAB. [Suspect]
     Active Substance: RITUXIMAB
     Indication: NEPHROTIC SYNDROME
     Route: 042
  3. PREDNISONE. [Suspect]
     Active Substance: PREDNISONE
     Indication: NEPHROTIC SYNDROME
     Route: 048
  4. MYCOPHENOLIC ACID. [Suspect]
     Active Substance: MYCOPHENOLIC ACID
     Indication: NEPHROTIC SYNDROME

REACTIONS (10)
  - Obesity [Recovered/Resolved]
  - Therapy non-responder [Unknown]
  - Osteopenia [Recovered/Resolved]
  - Body mass index increased [Recovered/Resolved]
  - Pneumonia [Unknown]
  - Hypertension [Recovered/Resolved]
  - Anaphylactic reaction [Unknown]
  - Off label use [Unknown]
  - B-lymphocyte count decreased [Recovered/Resolved]
  - Nephrotic syndrome [Unknown]
